FAERS Safety Report 4771118-9 (Version None)
Quarter: 2005Q3

REPORT INFORMATION
  Report Type: 
  Country: None (occurrence: None)
  Receive Date: 20050914
  Receipt Date: 20050902
  Transmission Date: 20060218
  Serious: Yes (Other)
  Sender: FDA-Public Use
  Company Number: 2005100582

PATIENT
  Age: 43 Year
  Sex: Female
  Weight: 120.2032 kg

DRUGS (1)
  1. ZITHROMAX [Suspect]
     Indication: BRONCHITIS
     Dosage: 500 MG (500 MG, QD), ORAL
     Route: 048
     Dates: start: 20050501

REACTIONS (2)
  - AGEUSIA [None]
  - ANOSMIA [None]
